FAERS Safety Report 9210863 (Version 4)
Quarter: 2013Q2

REPORT INFORMATION
  Report Type: Spontaneous
  Country: IT (occurrence: IT)
  Receive Date: 20130404
  Receipt Date: 20130430
  Transmission Date: 20140414
  Serious: Yes (Hospitalization, Other)
  Sender: FDA-Public Use
  Company Number: IT-ASTRAZENECA-2013SE20662

PATIENT
  Age: 13321 Day
  Sex: Male

DRUGS (16)
  1. SEROQUEL [Suspect]
     Indication: INTENTIONAL SELF-INJURY
     Route: 048
     Dates: start: 201301
  2. SEROQUEL [Suspect]
     Indication: PSYCHOTIC DISORDER
     Route: 048
     Dates: start: 201301
  3. SEROQUEL [Suspect]
     Indication: INTENTIONAL SELF-INJURY
     Route: 048
     Dates: start: 20130317, end: 20130317
  4. SEROQUEL [Suspect]
     Indication: PSYCHOTIC DISORDER
     Route: 048
     Dates: start: 20130317, end: 20130317
  5. DELORAZEPAM [Suspect]
     Indication: INTENTIONAL SELF-INJURY
     Route: 048
     Dates: start: 201301
  6. DELORAZEPAM [Suspect]
     Indication: PSYCHOTIC DISORDER
     Route: 048
     Dates: start: 201301
  7. DELORAZEPAM [Suspect]
     Indication: INTENTIONAL SELF-INJURY
     Route: 048
     Dates: start: 20130317, end: 20130317
  8. DELORAZEPAM [Suspect]
     Indication: PSYCHOTIC DISORDER
     Route: 048
     Dates: start: 20130317, end: 20130317
  9. CITALOPRAM [Suspect]
     Indication: INTENTIONAL SELF-INJURY
     Route: 048
     Dates: start: 201301
  10. CITALOPRAM [Suspect]
     Indication: PSYCHOTIC DISORDER
     Route: 048
     Dates: start: 201301
  11. CITALOPRAM [Suspect]
     Indication: INTENTIONAL SELF-INJURY
     Route: 048
     Dates: start: 20130317, end: 20130317
  12. CITALOPRAM [Suspect]
     Indication: PSYCHOTIC DISORDER
     Route: 048
     Dates: start: 20130317, end: 20130317
  13. ALPRAZOLAM [Suspect]
     Indication: INTENTIONAL SELF-INJURY
     Route: 048
     Dates: start: 201301
  14. ALPRAZOLAM [Suspect]
     Indication: PSYCHOTIC DISORDER
     Route: 048
     Dates: start: 201301
  15. ALPRAZOLAM [Suspect]
     Indication: INTENTIONAL SELF-INJURY
     Route: 048
     Dates: start: 20130317, end: 20130317
  16. ALPRAZOLAM [Suspect]
     Indication: PSYCHOTIC DISORDER
     Route: 048
     Dates: start: 20130317, end: 20130317

REACTIONS (5)
  - Drug abuse [Unknown]
  - Intentional self-injury [Unknown]
  - Sopor [Recovered/Resolved]
  - Speech disorder [Recovered/Resolved]
  - Blood pressure decreased [Unknown]
